FAERS Safety Report 9203538 (Version 1)
Quarter: 2013Q1

REPORT INFORMATION
  Report Type: Spontaneous
  Country: US (occurrence: None)
  Receive Date: 20120709
  Receipt Date: 20120709
  Transmission Date: 20140127
  Serious: Yes (Other)
  Sender: FDA-Public Use
  Company Number: PHHY2011US68794

PATIENT
  Age: 48 Year
  Sex: Female

DRUGS (21)
  1. GLEEVEC (IMATINIB) [Suspect]
     Indication: CHRONIC MYELOID LEUKAEMIA
  2. ACYCLOVIR (ACICLOVIR) (ACICLOVIR) [Concomitant]
  3. ALBUTEROL (SALBUTAMOL) [Concomitant]
  4. ZITHROMAX [Concomitant]
  5. FOLIC ACID (FOLIC ACID) [Concomitant]
  6. MAGNESIUM (MAGNESIUM) [Concomitant]
  7. MICAFUNGIN (MICAFUNGIN) [Concomitant]
  8. MULTIVITAMINS (ASCORBIC ACID, ERGOCALCIFEROL, FOLIC ACID, NICOTINAMIDE, PANTHENOL, RETINOL, RIBOFLAVIN, THIAMINE HYDROCHLORIDE) [Concomitant]
  9. PRILOSEC [Concomitant]
  10. OS-CAL (CALCIUM, ERGOCALCIFEROL) [Concomitant]
  11. PENTAMIDINE (PENTAMIDINE) [Concomitant]
  12. ACTIGALL (URSODEOXYCHOLIC ACID) [Concomitant]
  13. VITAMIN D(ERGOCALCIFEROL) [Concomitant]
  14. FISH OIL (FISH OIL) [Concomitant]
  15. HYDREA (HYDROXYCARBAMIDE) [Concomitant]
  16. SPRYCEL (DASATINIB) [Concomitant]
  17. DASATINIB (DASATINIB) [Concomitant]
  18. CYTOXAN (CYCLOPHOSPHAMIDE) [Concomitant]
  19. BUSULFAN (BUSULFAN) [Concomitant]
  20. MEDROL (METHYLPREDNISOLONE) [Concomitant]
  21. TARCROLIMUS (TACROLIMUS) [Concomitant]

REACTIONS (3)
  - Pancytopenia [None]
  - Drug resistance [None]
  - Headache [None]
